FAERS Safety Report 18603869 (Version 1)
Quarter: 2020Q4

REPORT INFORMATION
  Report Type: Report from Study
  Country: BE (occurrence: BE)
  Receive Date: 20201211
  Receipt Date: 20201211
  Transmission Date: 20210114
  Serious: Yes (Hospitalization, Other)
  Sender: FDA-Public Use
  Company Number: BE-JNJFOC-20201210128

PATIENT

DRUGS (1)
  1. STELARA [Suspect]
     Active Substance: USTEKINUMAB
     Indication: CROHN^S DISEASE
     Route: 058

REACTIONS (17)
  - Gastrointestinal infection [Unknown]
  - Urinary tract infection [Unknown]
  - Headache [Unknown]
  - Drug ineffective [Unknown]
  - Pneumonia [Unknown]
  - Adverse event [Unknown]
  - Drug intolerance [Unknown]
  - Respiratory tract infection [Unknown]
  - Infection [Unknown]
  - Thymus disorder [Unknown]
  - Breast cancer [Unknown]
  - Tooth infection [Unknown]
  - Off label use [Unknown]
  - Arthralgia [Unknown]
  - Product use issue [Unknown]
  - Skin infection [Unknown]
  - Skin lesion [Unknown]
